FAERS Safety Report 17136599 (Version 1)
Quarter: 2019Q4

REPORT INFORMATION
  Report Type: Spontaneous
  Country: IL (occurrence: IL)
  Receive Date: 20191210
  Receipt Date: 20191210
  Transmission Date: 20200122
  Serious: Yes (Life-Threatening, Other)
  Sender: FDA-Public Use
  Company Number: IL-FRESENIUS KABI-FK201913622

PATIENT
  Sex: Male
  Weight: 2.84 kg

DRUGS (1)
  1. DEXAMETHASONE INJECTION (MANUFACTURER UNKNOWN) [Suspect]
     Active Substance: DEXAMETHASONE
     Indication: PRODUCT USED FOR UNKNOWN INDICATION
     Dosage: UNKNOWN
     Route: 064

REACTIONS (5)
  - Pneumothorax [Recovered/Resolved]
  - Newborn persistent pulmonary hypertension [Recovered/Resolved]
  - Respiratory failure [Recovered/Resolved]
  - Foetal exposure during pregnancy [Recovered/Resolved]
  - Right ventricular dysfunction [Recovered/Resolved]
